FAERS Safety Report 8515211-3 (Version None)
Quarter: 2012Q3

REPORT INFORMATION
  Report Type: 
  Country: None (occurrence: None)
  Receive Date: 20120717
  Receipt Date: 20120705
  Transmission Date: 20120928
  Serious: Yes (Hospitalization)
  Sender: FDA-Public Use
  Company Number: IT-BRISTOL-MYERS SQUIBB COMPANY-16746760

PATIENT
  Age: 74 Year
  Sex: Female

DRUGS (11)
  1. COUMADIN [Suspect]
     Indication: ATRIAL FIBRILLATION
     Dosage: 1DF=1 DOSE INTERRUPTED ON 18JUN2012
     Route: 048
     Dates: start: 20120101
  2. CITALOPRAM HYDROBROMIDE [Concomitant]
     Indication: DEPRESSION
     Dosage: FORMULATION-CITALOPRAM HCL
     Route: 048
  3. GLUCOPHAGE [Concomitant]
     Indication: DIABETES MELLITUS
     Dosage: 1DF=-3 DOSES.FORMULATION-GLUCOPHAGE 500MG
     Route: 048
  4. HUMALOG [Concomitant]
     Indication: DIABETES MELLITUS
     Route: 058
  5. BISOPROLOL FUMARATE [Concomitant]
     Indication: HYPERTROPHIC CARDIOMYOPATHY
     Route: 048
  6. LEVOTHYROXINE SODIUM [Concomitant]
  7. ISOPTIN [Concomitant]
     Indication: HYPERTENSION
     Dosage: 1DF=3 DOSES.FORMULATION-ISOPTIN 80MG
     Route: 048
  8. NITRODERM PATCH [Concomitant]
     Indication: HYPERTROPHIC CARDIOMYOPATHY
     Route: 062
  9. LUCEN [Concomitant]
     Indication: HIATUS HERNIA
  10. ALLOPURINOL [Concomitant]
  11. XANAX [Concomitant]
     Indication: DEPRESSION

REACTIONS (2)
  - RECTAL CANCER [None]
  - INTERNATIONAL NORMALISED RATIO INCREASED [None]
